FAERS Safety Report 17913459 (Version 1)
Quarter: 2020Q2

REPORT INFORMATION
  Report Type: Spontaneous
  Country: US (occurrence: US)
  Receive Date: 20200618
  Receipt Date: 20200618
  Transmission Date: 20200714
  Serious: No
  Sender: FDA-Public Use
  Company Number: US-THERAPEUTICSMD-2020TMD02255

PATIENT
  Sex: Female
  Weight: 58.96 kg

DRUGS (5)
  1. IMVEXXY [Suspect]
     Active Substance: ESTRADIOL
     Indication: DEPRESSION
     Dosage: 10 ?G, 2X/WEEK BEFORE BED
     Route: 067
     Dates: start: 2018
  2. IMVEXXY [Suspect]
     Active Substance: ESTRADIOL
     Indication: VULVOVAGINAL DRYNESS
  3. IMVEXXY [Suspect]
     Active Substance: ESTRADIOL
     Indication: FATIGUE
  4. IMVEXXY [Suspect]
     Active Substance: ESTRADIOL
     Indication: HOT FLUSH
  5. IMVEXXY [Suspect]
     Active Substance: ESTRADIOL
     Indication: MOOD SWINGS

REACTIONS (7)
  - Vulvovaginal discomfort [Recovered/Resolved]
  - Intentional dose omission [Recovered/Resolved]
  - Vulvovaginal mycotic infection [Recovered/Resolved]
  - Drug ineffective for unapproved indication [Not Recovered/Not Resolved]
  - Mood swings [Not Recovered/Not Resolved]
  - Product dose omission [Recovered/Resolved]
  - Vulvovaginal dryness [Recovered/Resolved]
